FAERS Safety Report 16692740 (Version 3)
Quarter: 2019Q3

REPORT INFORMATION
  Report Type: Report from Study
  Country: US (occurrence: US)
  Receive Date: 20190812
  Receipt Date: 20190924
  Transmission Date: 20191004
  Serious: Yes (Other)
  Sender: FDA-Public Use
  Company Number: US-BAYER-2019-146080

PATIENT
  Age: 57 Year
  Sex: Male

DRUGS (1)
  1. STIVARGA [Suspect]
     Active Substance: REGORAFENIB
     Indication: COLORECTAL CANCER
     Dosage: DAILY DOSE 80 MG, IN CYCLES OF 21 DAYS ON AND 7 DAYS OFF
     Route: 048
     Dates: start: 20190723

REACTIONS (12)
  - Weight increased [Not Recovered/Not Resolved]
  - Weight decreased [Not Recovered/Not Resolved]
  - Abdominal pain [Not Recovered/Not Resolved]
  - Vomiting [Not Recovered/Not Resolved]
  - Pain in extremity [Recovered/Resolved]
  - Decreased appetite [Not Recovered/Not Resolved]
  - Dyspnoea [Not Recovered/Not Resolved]
  - Fatigue [Not Recovered/Not Resolved]
  - Blood urine present [Not Recovered/Not Resolved]
  - White blood cell count increased [Not Recovered/Not Resolved]
  - Erythema [Recovered/Resolved]
  - Off label use [None]

NARRATIVE: CASE EVENT DATE: 20190723
